FAERS Safety Report 8503566-5 (Version None)
Quarter: 2012Q3

REPORT INFORMATION
  Report Type: 
  Country: None (occurrence: None)
  Receive Date: 20120711
  Receipt Date: 20120706
  Transmission Date: 20120928
  Serious: Yes (Other)
  Sender: FDA-Public Use
  Company Number: PT-PFIZER INC-2012145931

PATIENT
  Age: 76 Year
  Sex: Female
  Weight: 61 kg

DRUGS (10)
  1. INSULATARD PENFILL [Concomitant]
     Route: 058
  2. RAMIPRIL [Concomitant]
     Route: 048
  3. LASIX [Concomitant]
     Route: 048
  4. MAGNESIOCARD [Concomitant]
     Dosage: 1229.6 MG, 1X/DAY
     Route: 048
  5. PARACETAMOL GENERIS [Concomitant]
     Dosage: 500 MG, AS NEEDED
     Route: 048
  6. NITROGLYCERIN [Suspect]
     Indication: ANGINA PECTORIS
     Dosage: 5MG/24H
     Route: 062
     Dates: start: 20120601
  7. METFORMIN HCL [Concomitant]
     Route: 048
  8. NEBIVOLOL ACTAVIS [Concomitant]
  9. CARTIA XT [Concomitant]
     Route: 048
  10. ATORVASTATINA FARMOZ [Concomitant]
     Route: 048

REACTIONS (3)
  - DYSPNOEA [None]
  - CHEST PAIN [None]
  - DRUG INEFFECTIVE [None]
